FAERS Safety Report 4884012-X (Version None)
Quarter: 2006Q1

REPORT INFORMATION
  Report Type: 
  Country: None (occurrence: None)
  Receive Date: 20060110
  Receipt Date: 20051220
  Transmission Date: 20060701
  Serious: Yes (Life-Threatening, Hospitalization)
  Sender: FDA-Public Use
  Company Number: THYM-10848

PATIENT
  Age: 59 Year
  Sex: Male
  Weight: 68 kg

DRUGS (3)
  1. THYMOGLOBULIN [Suspect]
     Indication: RENAL TRANSPLANT
     Dates: start: 20051124, end: 20051124
  2. SOLU-MEDROL [Concomitant]
  3. CELLCEPT [Concomitant]

REACTIONS (3)
  - ACUTE CORONARY SYNDROME [None]
  - CHILLS [None]
  - PYREXIA [None]
